FAERS Safety Report 7501373-3 (Version None)
Quarter: 2011Q2

REPORT INFORMATION
  Report Type: 
  Country: None (occurrence: None)
  Receive Date: 20110524
  Receipt Date: 20110506
  Transmission Date: 20111010
  Serious: Yes (Hospitalization, Other)
  Sender: FDA-Public Use
  Company Number: US-BAYER-2011-031837

PATIENT
  Age: 49 Year
  Sex: Female
  Weight: 59 kg

DRUGS (10)
  1. HAVRIX [Concomitant]
     Route: 048
  2. CIPROFLOXACIN HCL [Concomitant]
     Dosage: 500 MG, UNK
     Route: 048
  3. LEXAPRO [Concomitant]
     Indication: DEPRESSION
     Dosage: 10 MG, UNK
     Route: 048
  4. FOSAMAX [Concomitant]
     Indication: OSTEOPENIA
     Dosage: 70 MG, UNK
     Route: 048
  5. TOBRADEX [Concomitant]
  6. TYPHIM VI [Concomitant]
     Route: 048
  7. ACETAZOLAMIDE [Concomitant]
     Dosage: 125 MG, UNK
     Route: 048
  8. NEXIUM [Concomitant]
     Indication: GASTROOESOPHAGEAL REFLUX DISEASE
     Dosage: 40 MG, UNK
     Route: 048
  9. NITROFURANTOIN [Concomitant]
     Indication: INFECTION PROPHYLAXIS
     Dosage: 100 MG, UNK
     Route: 048
  10. YAZ [Suspect]
     Indication: PREMENSTRUAL SYNDROME
     Dosage: UNK
     Route: 048
     Dates: start: 20070601, end: 20080201

REACTIONS (3)
  - INJURY [None]
  - DEEP VEIN THROMBOSIS [None]
  - PAIN [None]
